FAERS Safety Report 17560059 (Version 4)
Quarter: 2022Q2

REPORT INFORMATION
  Report Type: Spontaneous
  Country: US (occurrence: US)
  Receive Date: 20200319
  Receipt Date: 20220422
  Transmission Date: 20220721
  Serious: No
  Sender: FDA-Public Use
  Company Number: US-PFIZER INC-2020116629

PATIENT
  Age: 57 Year
  Sex: Female

DRUGS (1)
  1. CELEBREX [Suspect]
     Active Substance: CELECOXIB
     Indication: Multiple sclerosis
     Dosage: 100 MG (1 CAPSULE), 2X/DAY
     Route: 048

REACTIONS (10)
  - Gait inability [Unknown]
  - Off label use [Unknown]
  - Walking disability [Unknown]
  - Back pain [Unknown]
  - Neck pain [Unknown]
  - Eye pain [Unknown]
  - Fatigue [Unknown]
  - Arthralgia [Unknown]
  - Hypoaesthesia [Unknown]
  - Paraesthesia [Unknown]
